FAERS Safety Report 9813822 (Version 1)
Quarter: 2014Q1

REPORT INFORMATION
  Report Type: Spontaneous
  Country: US (occurrence: US)
  Receive Date: 20140113
  Receipt Date: 20140113
  Transmission Date: 20141002
  Serious: Yes (Death)
  Sender: FDA-Public Use
  Company Number: US-PFIZER INC-2014006118

PATIENT
  Age: 42 Year
  Sex: Female

DRUGS (5)
  1. TRIAZOLAM [Suspect]
     Dosage: UNK
  2. PREGABALIN [Suspect]
     Dosage: UNK
  3. INSULIN [Suspect]
  4. NEBIVOLOL [Suspect]
     Dosage: UNK
  5. ZOLPIDEM [Suspect]
     Dosage: UNK

REACTIONS (3)
  - Completed suicide [Fatal]
  - Cardiac arrest [Fatal]
  - Respiratory arrest [Fatal]
